FAERS Safety Report 8930369 (Version 1)
Quarter: 2012Q4

REPORT INFORMATION
  Report Type: 
  Country: FR (occurrence: FR)
  Receive Date: 20121128
  Receipt Date: 20121128
  Transmission Date: 20130627
  Serious: Yes (Hospitalization)
  Sender: FDA-Public Use
  Company Number: FR-GLAXOSMITHKLINE-B0844061A

PATIENT
  Sex: Female

DRUGS (5)
  1. AVANDAMET [Suspect]
     Indication: TYPE 2 DIABETES MELLITUS
     Route: 048
     Dates: end: 200906
  2. TARKA [Concomitant]
     Route: 065
  3. TERCIAN [Concomitant]
  4. NEURONTIN [Concomitant]
  5. DEROXAT [Concomitant]

REACTIONS (3)
  - Lung disorder [Unknown]
  - Pulmonary fibrosis [Unknown]
  - Pneumonia [Unknown]
